FAERS Safety Report 8553367-7 (Version None)
Quarter: 2012Q3

REPORT INFORMATION
  Report Type: 
  Country: None (occurrence: None)
  Receive Date: 20120731
  Receipt Date: 20120720
  Transmission Date: 20120928
  Serious: Yes (Congenital Anomaly)
  Sender: FDA-Public Use
  Company Number: FR-ROCHE-1091177

PATIENT
  Sex: Female
  Weight: 2.36 kg

DRUGS (5)
  1. CELLCEPT [Suspect]
     Indication: PRODUCT USED FOR UNKNOWN INDICATION
     Route: 064
     Dates: end: 20110715
  2. CELLCEPT [Suspect]
     Indication: RENAL FAILURE
  3. IMURAN [Suspect]
     Indication: PRODUCT USED FOR UNKNOWN INDICATION
     Route: 064
     Dates: start: 20110907, end: 20120413
  4. ASPIRIN [Concomitant]
  5. LOVENOX [Concomitant]

REACTIONS (6)
  - EXTERNAL AUDITORY CANAL ATRESIA [None]
  - COLOBOMA [None]
  - MICROPHTHALMOS [None]
  - MICROTIA [None]
  - ATROPHY [None]
  - MATERNAL EXPOSURE TIMING UNSPECIFIED [None]
